FAERS Safety Report 21272989 (Version 1)
Quarter: 2022Q3

REPORT INFORMATION
  Report Type: Report from Study
  Country: DE (occurrence: DE)
  Receive Date: 20220831
  Receipt Date: 20220831
  Transmission Date: 20221027
  Serious: Yes (Hospitalization)
  Sender: FDA-Public Use
  Company Number: DE-ARGENX-2022-ARGX-DE001646

PATIENT

DRUGS (1)
  1. EFGARTIGIMOD ALFA [Suspect]
     Active Substance: EFGARTIGIMOD ALFA
     Indication: Myasthenia gravis
     Dosage: 770 MG
     Route: 042
     Dates: start: 20220111

REACTIONS (2)
  - Pneumonia [Recovered/Resolved]
  - Myasthenia gravis crisis [Recovered/Resolved]

NARRATIVE: CASE EVENT DATE: 20220629
